FAERS Safety Report 4466269-2 (Version None)
Quarter: 2004Q3

REPORT INFORMATION
  Report Type: 
  Country: None (occurrence: None)
  Receive Date: 20040930
  Receipt Date: 20040921
  Transmission Date: 20050211
  Serious: Yes (Death, Hospitalization)
  Sender: FDA-Public Use
  Company Number: THYR-10185

PATIENT
  Age: 76 Year
  Sex: Female

DRUGS (2)
  1. THYROGEN [Suspect]
     Indication: METASTASIS
     Dosage: 0.9MG QD IM
     Route: 030
     Dates: start: 20010801, end: 20010801
  2. THYROGEN [Suspect]
     Indication: METASTASIS
     Dosage: 0.9 MG QD IM
     Route: 030
     Dates: start: 20020101, end: 20020101

REACTIONS (4)
  - ANTI-THYROID ANTIBODY POSITIVE [None]
  - HYPOCALCAEMIA [None]
  - SCAN ABNORMAL [None]
  - THYROGLOBULIN INCREASED [None]
